FAERS Safety Report 8270631-X (Version None)
Quarter: 2012Q2

REPORT INFORMATION
  Report Type: 
  Country: None (occurrence: None)
  Receive Date: 20120410
  Receipt Date: 20120406
  Transmission Date: 20120825
  Serious: No
  Sender: FDA-Public Use
  Company Number: US-TEVA-332278USA

PATIENT
  Sex: Female
  Weight: 65.83 kg

DRUGS (2)
  1. MULTI-VITAMIN [Concomitant]
     Indication: MEDICAL DIET
  2. PLAN B ONE-STEP [Suspect]
     Indication: POST COITAL CONTRACEPTION
     Dosage: 1.5 MILLIGRAM;
     Route: 048
     Dates: start: 20120402, end: 20120402

REACTIONS (1)
  - MENSTRUATION IRREGULAR [None]
